FAERS Safety Report 7436833-7 (Version None)
Quarter: 2011Q2

REPORT INFORMATION
  Report Type: 
  Country: None (occurrence: None)
  Receive Date: 20110426
  Receipt Date: 20101209
  Transmission Date: 20111010
  Serious: Yes (Hospitalization, Other)
  Sender: FDA-Public Use
  Company Number: US-BAYER-201023786NA

PATIENT
  Age: 20 Year
  Sex: Female
  Weight: 102 kg

DRUGS (25)
  1. PREDNISONE [Concomitant]
  2. ATENOLOL [Concomitant]
  3. ALPRAZOLAM [Concomitant]
  4. YASMIN [Suspect]
     Indication: PRODUCT USED FOR UNKNOWN INDICATION
     Dosage: UNK
     Route: 048
     Dates: start: 20070901, end: 20080201
  5. ONDANSETRON HYDROCHLORIDE [Concomitant]
  6. HYDROCODONE BITARTRATE AND ACETAMINOPHEN [Concomitant]
  7. PANTOPRAZOLE SODIUM [Concomitant]
  8. PROMETRIUM [Concomitant]
  9. CVS ACID CONTROLLER [Concomitant]
  10. HYDROXYZINE HCL [Concomitant]
  11. YAZ [Suspect]
     Indication: UTERINE HAEMORRHAGE
     Dosage: UNK
     Route: 048
     Dates: end: 20080201
  12. FLUOXETINE HYDROCHLORIDE [Concomitant]
  13. OMEPRAZOLE [Concomitant]
  14. CEPHALEXIN [Concomitant]
  15. OCELLA [Suspect]
     Indication: PRODUCT USED FOR UNKNOWN INDICATION
     Route: 048
  16. CEFDINIR [Concomitant]
  17. A/B OTIC [Concomitant]
  18. LIDOCAINE [Concomitant]
  19. PROMETHAZINE [Concomitant]
  20. CVS SENNA-C [Concomitant]
  21. MORPHINE SULFATE [Concomitant]
  22. ZOLPIDEM [Concomitant]
  23. AMBIEN [Concomitant]
  24. MAXALT [Concomitant]
  25. NABUMETONE [Concomitant]

REACTIONS (5)
  - CHOLECYSTECTOMY [None]
  - CHOLELITHIASIS [None]
  - PAIN [None]
  - PULMONARY EMBOLISM [None]
  - PULMONARY INFARCTION [None]
